FAERS Safety Report 7744812-5 (Version None)
Quarter: 2011Q3

REPORT INFORMATION
  Report Type: 
  Country: None (occurrence: None)
  Receive Date: 20110912
  Receipt Date: 20110912
  Transmission Date: 20111222
  Serious: Yes (Other)
  Sender: FDA-Public Use
  Company Number: None

PATIENT
  Age: 58 Year
  Sex: Male
  Weight: 77.11 kg

DRUGS (1)
  1. ZOCOR [Suspect]

REACTIONS (4)
  - PYREXIA [None]
  - TENDON RUPTURE [None]
  - MUSCULAR WEAKNESS [None]
  - MUSCLE TWITCHING [None]
